FAERS Safety Report 4386143-X (Version None)
Quarter: 2004Q2

REPORT INFORMATION
  Report Type: 
  Country: None (occurrence: None)
  Receive Date: 20040622
  Receipt Date: 20040609
  Transmission Date: 20050107
  Serious: Yes (Hospitalization, Other)
  Sender: FDA-Public Use
  Company Number: 2004036161

PATIENT
  Age: 12 Year
  Sex: Female
  Weight: 56.6996 kg

DRUGS (8)
  1. GEODON [Suspect]
     Indication: BIPOLAR DISORDER
     Dosage: 60 MG (20 MG, 2 IN 1 D), ORAL
     Route: 048
     Dates: start: 20040412
  2. OXCARBAZEPINE (OXCARBAZEPINE) [Suspect]
     Indication: BIPOLAR DISORDER
     Dosage: 1800 MG (3 IN 1 D) , ORAL
     Route: 048
     Dates: start: 20031210, end: 20040401
  3. ATOMOXETINE HYDROCHLORIDE (ATOMOXETINE HYDROCHLORIDE) [Suspect]
     Indication: ATTENTION DEFICIT/HYPERACTIVITY DISORDER
     Dosage: 80 (40, 2 IN 1 D) ,ORAL
     Route: 048
     Dates: start: 20030306
  4. VALPROATE SODIUM [Concomitant]
  5. FAMOTIDINE [Concomitant]
  6. RANITIDINE [Concomitant]
  7. GABAPENTIN [Concomitant]
  8. QUETIAPINE FUMARATE [Concomitant]

REACTIONS (19)
  - ABDOMINAL PAIN UPPER [None]
  - ABNORMAL BEHAVIOUR [None]
  - AGITATION [None]
  - ANTICONVULSANT DRUG LEVEL DECREASED [None]
  - ANTIPSYCHOTIC DRUG LEVEL BELOW THERAPEUTIC [None]
  - BIPOLAR DISORDER [None]
  - CONSTIPATION [None]
  - DEPRESSED LEVEL OF CONSCIOUSNESS [None]
  - DRUG INTERACTION [None]
  - FATIGUE [None]
  - INSOMNIA [None]
  - LOSS OF CONSCIOUSNESS [None]
  - MIGRAINE [None]
  - PSYCHOTIC DISORDER [None]
  - SOMNOLENCE [None]
  - THERAPEUTIC AGENT TOXICITY [None]
  - TREATMENT NONCOMPLIANCE [None]
  - VOMITING [None]
  - WEIGHT DECREASED [None]
